FAERS Safety Report 6436665-2 (Version None)
Quarter: 2009Q4

REPORT INFORMATION
  Report Type: 
  Country: None (occurrence: None)
  Receive Date: 20091111
  Receipt Date: 20091030
  Transmission Date: 20100525
  Serious: Yes (Other)
  Sender: FDA-Public Use
  Company Number: US-PFIZER INC-2009292071

PATIENT
  Sex: Female
  Weight: 58.95 kg

DRUGS (1)
  1. ESTRING [Suspect]
     Indication: VULVOVAGINAL DRYNESS
     Dosage: UNK
     Dates: start: 20090917

REACTIONS (3)
  - BREAST DISORDER [None]
  - MUSCLE SPASMS [None]
  - SKIN ODOUR ABNORMAL [None]
